FAERS Safety Report 17486577 (Version 1)
Quarter: 2020Q1

REPORT INFORMATION
  Report Type: Spontaneous
  Country: GB (occurrence: GB)
  Receive Date: 20200303
  Receipt Date: 20200303
  Transmission Date: 20200409
  Serious: Yes (Other)
  Sender: FDA-Public Use
  Company Number: GB-ACCORD-174451

PATIENT
  Age: 68 Year
  Sex: Male
  Weight: 86 kg

DRUGS (2)
  1. ATORVASTATIN/ATORVASTATIN CALCIUM [Suspect]
     Active Substance: ATORVASTATIN CALCIUM
     Indication: BLOOD CHOLESTEROL INCREASED
     Dates: start: 20190508
  2. AMOXICILLIN. [Concomitant]
     Active Substance: AMOXICILLIN
     Indication: LOWER RESPIRATORY TRACT INFECTION
     Dates: start: 20200129

REACTIONS (2)
  - Disturbance in attention [Unknown]
  - Memory impairment [Recovering/Resolving]

NARRATIVE: CASE EVENT DATE: 20200110
